FAERS Safety Report 6924575-3 (Version None)
Quarter: 2010Q3

REPORT INFORMATION
  Report Type: 
  Country: None (occurrence: None)
  Receive Date: 20100816
  Receipt Date: 20100804
  Transmission Date: 20110219
  Serious: Yes (Hospitalization, Other)
  Sender: FDA-Public Use
  Company Number: CO-JNJFOC-20100705273

PATIENT
  Age: 39 Year
  Sex: Female
  Weight: 46 kg

DRUGS (3)
  1. GOLIMUMAB [Suspect]
     Indication: RHEUMATOID ARTHRITIS
     Route: 058
  2. GOLIMUMAB [Suspect]
     Route: 058
  3. MEROPENEM [Suspect]
     Indication: URINARY TRACT INFECTION

REACTIONS (2)
  - ARTHRITIS BACTERIAL [None]
  - HEPATIC ENZYME INCREASED [None]
